FAERS Safety Report 17760683 (Version 2)
Quarter: 2020Q2

REPORT INFORMATION
  Report Type: Report from Study
  Country: IN (occurrence: IN)
  Receive Date: 20200508
  Receipt Date: 20200513
  Transmission Date: 20200714
  Serious: Yes (Other)
  Sender: FDA-Public Use
  Company Number: NVSC2020IN125442

PATIENT
  Sex: Male

DRUGS (2)
  1. CREMAFFIN [Concomitant]
     Indication: PRODUCT USED FOR UNKNOWN INDICATION
     Dosage: UNK, QD
     Route: 065
  2. SCAPHO [Suspect]
     Active Substance: SECUKINUMAB
     Indication: ANKYLOSING SPONDYLITIS
     Dosage: 150 MG, QW
     Route: 058

REACTIONS (8)
  - Tongue discolouration [Unknown]
  - Haematochezia [Unknown]
  - Lip discolouration [Unknown]
  - Ageusia [Unknown]
  - Latent tuberculosis [Unknown]
  - Underdose [Unknown]
  - Faecaloma [Unknown]
  - Eating disorder [Unknown]
